FAERS Safety Report 25846086 (Version 2)
Quarter: 2025Q4

REPORT INFORMATION
  Report Type: Spontaneous
  Country: GB (occurrence: GB)
  Receive Date: 20250925
  Receipt Date: 20251013
  Transmission Date: 20260118
  Serious: Yes (Hospitalization, Other)
  Sender: MYLAN
  Company Number: GB-MYLANLABS-2025M1076191

PATIENT
  Sex: Female
  Weight: 79.1 kg

DRUGS (10)
  1. CLOZARIL [Suspect]
     Active Substance: CLOZAPINE
     Indication: Product used for unknown indication
     Dosage: 300 MILLIGRAM, QD
     Dates: start: 20140206
  2. EPILIM [Suspect]
     Active Substance: VALPROATE SODIUM
     Indication: Epilepsy
     Dosage: 1 DOSAGE FORM, PM, 30 TABLET (ONE TO BE TAKEN AT NIGHT)
  3. CALCIUM CARBONATE\CHOLECALCIFEROL [Concomitant]
     Active Substance: CALCIUM CARBONATE\CHOLECALCIFEROL
     Indication: Humerus fracture
     Dosage: 1 DOSAGE FORM, BID (CHEWABLE TABLETS TUTTI FRUTTI  LAST ISSUED: 27-AUG-2025 , A DAY (LUNCH TIME AND TEATIME) FOR BONE HEALTH. (NOT AT THE SAME TIME AS LEVOTHYROXINE) 56 TABLET
  4. IBUPROFEN [Concomitant]
     Active Substance: IBUPROFEN
     Indication: Humerus fracture
     Dosage: UNK, PRN (APPLY THREE TIMES A DAY WHEN REQUIRED WITH GENTLE MASSAGE TO RELIEVE PAIN. CAUTION: POTENTIAL FIRE RISK WITH THIS PRODUCT, AVOID NAKED FLAMES 100 GRAM)
  5. POLYETHYLENE GLYCOL 3350\POTASSIUM CHLORIDE\SODIUM BICARBONATE\SODIUM [Concomitant]
     Active Substance: POLYETHYLENE GLYCOL 3350\POTASSIUM CHLORIDE\SODIUM BICARBONATE\SODIUM CHLORIDE
     Indication: Constipation
     Dosage: 1 DOSAGE FORM, AM ,30 SACHET (ONE TO BE TAKEN EACH MORNING ONLY WHEN NEEDED WITH PLENTY OF FLUID TO RELIEVE CONSTIPATION)
  6. LEVOTHYROXINE SODIUM [Concomitant]
     Active Substance: LEVOTHYROXINE SODIUM
     Indication: Hypothyroidism
     Dosage: 1 DOSAGE FORM, AM (28 TABLET (ONE TO BE TAKEN EACH MORNING PREFERABLY 30-60 MINUTES BEFORE BREAKFAST, CAFFEINE, CONTAINING DRINKS OR OTHER MEDICATION)
  7. OMEPRAZOLE [Concomitant]
     Active Substance: OMEPRAZOLE
     Indication: Gastrointestinal disorder prophylaxis
     Dosage: 1 DOSAGE FORM, AM, 28 CAPSULE, ONE TO BE TAKEN EACH MORNING BEFORE BREAKFAST (TO PROTECT STOMACH)
  8. ACETAMINOPHEN [Concomitant]
     Active Substance: ACETAMINOPHEN
     Indication: Humerus fracture
     Dosage: 2 DOSAGE FORM, QID (TWO TO BE TAKEN FOUR  TIMES A DAY FOR PAIN  RELIEF (PLEASE SUPPLY  CAPLETS)
  9. SIMVASTATIN [Concomitant]
     Active Substance: SIMVASTATIN
     Indication: Type IIa hyperlipidaemia
     Dosage: 1 DOSAGE FORM, PM, 28 TABLETS, (ONE TO BE TAKEN AT NIGHT (AVOID GRAPEFRUIT JUICE)
  10. SOLIFENACIN [Concomitant]
     Active Substance: SOLIFENACIN
     Indication: Urinary incontinence
     Dosage: 1 DOSAGE FORM,AM (ONE TO BE TAKEN EACH MORNING)

REACTIONS (10)
  - Confusional state [Unknown]
  - Infection [Recovering/Resolving]
  - Macrocytosis [Recovering/Resolving]
  - Full blood count abnormal [Recovering/Resolving]
  - C-reactive protein increased [Unknown]
  - White blood cell count increased [Recovered/Resolved]
  - Neutrophilia [Recovered/Resolved]
  - Blood albumin decreased [Unknown]
  - Blood prolactin increased [Unknown]
  - High density lipoprotein decreased [Unknown]

NARRATIVE: CASE EVENT DATE: 20250101
